FAERS Safety Report 10882429 (Version 1)
Quarter: 2015Q1

REPORT INFORMATION
  Report Type: Spontaneous
  Country: GB (occurrence: None)
  Receive Date: 20150226
  Receipt Date: 20150226
  Transmission Date: 20150721
  Serious: Yes (Hospitalization)
  Sender: FDA-Public Use
  Company Number: NES-LS-15-002

PATIENT
  Sex: Male

DRUGS (2)
  1. MORPHINE [Suspect]
     Active Substance: MORPHINE
     Indication: PAIN MANAGEMENT
     Route: 048
  2. NALOXONE [Suspect]
     Active Substance: NALOXONE
     Indication: OVERDOSE
     Route: 042

REACTIONS (8)
  - Toxicity to various agents [None]
  - Pulmonary embolism [None]
  - Somnolence [None]
  - Drug withdrawal syndrome [None]
  - Agitation [None]
  - Oxygen saturation decreased [None]
  - Pain [None]
  - Hypoxia [None]
